FAERS Safety Report 8787063 (Version 1)
Quarter: 2012Q4

REPORT INFORMATION
  Report Type: 
  Country: US (occurrence: US)
  Receive Date: 20120914
  Receipt Date: 20120914
  Transmission Date: 20130627
  Serious: No
  Sender: FDA-Public Use
  Company Number: US-PFIZER INC-2012224433

PATIENT
  Age: 66 Year
  Sex: Female
  Weight: 107 kg

DRUGS (3)
  1. CELEBREX [Suspect]
     Indication: RHEUMATOID ARTHRITIS
     Dosage: 200 mg, 2x/day
     Route: 048
     Dates: start: 200307
  2. CELEBREX [Suspect]
     Dosage: 200 mg, 1x/day
     Route: 048
  3. COUMADIN [Concomitant]
     Indication: THROMBOSIS
     Dosage: 4 mg,daily
     Dates: start: 200210

REACTIONS (5)
  - Intentional drug misuse [Unknown]
  - Oedema peripheral [Unknown]
  - Musculoskeletal stiffness [Unknown]
  - Nasopharyngitis [Recovering/Resolving]
  - Oropharyngeal pain [Recovering/Resolving]
